FAERS Safety Report 7329165-9 (Version None)
Quarter: 2011Q1

REPORT INFORMATION
  Report Type: 
  Country: None (occurrence: None)
  Receive Date: 20110303
  Receipt Date: 20110222
  Transmission Date: 20110831
  Serious: Yes (Hospitalization)
  Sender: FDA-Public Use
  Company Number: A0804415A

PATIENT
  Age: 47 Year
  Sex: Male
  Weight: 104.5 kg

DRUGS (7)
  1. FELODIPINE [Concomitant]
  2. SIMVASTATIN [Concomitant]
  3. IRBESARTAN [Concomitant]
  4. SYNTHROID [Concomitant]
  5. AVANDIA [Suspect]
     Indication: DIABETES MELLITUS
     Route: 048
  6. METOPROLOL SUCCINATE [Concomitant]
  7. LISINOPRIL [Concomitant]

REACTIONS (3)
  - CORONARY ARTERY DISEASE [None]
  - CARDIAC FAILURE CONGESTIVE [None]
  - MYOCARDIAL INFARCTION [None]
